FAERS Safety Report 4732714-8 (Version None)
Quarter: 2005Q3

REPORT INFORMATION
  Report Type: 
  Country: None (occurrence: None)
  Receive Date: 20050801
  Receipt Date: 20050719
  Transmission Date: 20060218
  Serious: Yes (Hospitalization)
  Sender: FDA-Public Use
  Company Number: RENA-11402

PATIENT
  Age: 57 Year
  Sex: Female

DRUGS (15)
  1. PHOSBLOCK-250 MG TABLET [Suspect]
     Indication: HYPERPHOSPHATAEMIA
     Dosage: 1.5 G DAILY PO
     Route: 048
     Dates: start: 20050418, end: 20050529
  2. PHOSBLOCK-250 MG TABLET [Suspect]
     Indication: HYPERPHOSPHATAEMIA
     Dosage: 1.5 G DAILY PO
     Route: 048
     Dates: start: 20050623
  3. TROXIPIDE [Concomitant]
  4. CALCIUM POLYSTYRENE SULFONATE [Concomitant]
  5. CALCIUM CARBONATE [Concomitant]
  6. NIFEDIPINE [Concomitant]
  7. VALSARTAN [Concomitant]
  8. AMLODIPINE BESYLATE [Concomitant]
  9. SIMVASTATIN [Concomitant]
  10. SENNOSIDE [Concomitant]
  11. DIAZEPAM [Concomitant]
  12. BROTIZOLAM [Concomitant]
  13. LORATADINE [Concomitant]
  14. EPOETIN ALFA [Concomitant]
  15. CALCITRIOL [Concomitant]

REACTIONS (1)
  - SUBDURAL HAEMATOMA [None]
